FAERS Safety Report 4417097-5 (Version None)
Quarter: 2004Q2

REPORT INFORMATION
  Report Type: 
  Country: None (occurrence: None)
  Receive Date: 20040628
  Receipt Date: 20031126
  Transmission Date: 20050107
  Serious: No
  Sender: FDA-Public Use
  Company Number: USA-2003-0011116

PATIENT
  Sex: Female

DRUGS (1)
  1. SPECTRACEF [Suspect]
     Indication: UPPER RESPIRATORY TRACT INFECTION
     Dosage: 200 MG, BID

REACTIONS (3)
  - DRUG INEFFECTIVE FOR UNAPPROVED INDICATION [None]
  - DYSPEPSIA [None]
  - GASTROINTESTINAL DISORDER [None]
